FAERS Safety Report 15566054 (Version 1)
Quarter: 2018Q4

REPORT INFORMATION
  Report Type: Spontaneous
  Country: US (occurrence: US)
  Receive Date: 20181030
  Receipt Date: 20181030
  Transmission Date: 20190205
  Serious: No
  Sender: FDA-Public Use
  Company Number: US-NOVOPROD-575469

PATIENT
  Sex: Female

DRUGS (2)
  1. VAGIFEM LD [Suspect]
     Active Substance: ESTRADIOL
     Dosage: UNK, 3 TIMES A DAY
     Route: 067
     Dates: start: 2017
  2. VAGIFEM LD [Suspect]
     Active Substance: ESTRADIOL
     Indication: PRODUCT USED FOR UNKNOWN INDICATION
     Dosage: UNK, TWICE WEEKLY
     Route: 067

REACTIONS (3)
  - Medial tibial stress syndrome [Unknown]
  - Incorrect dose administered [Unknown]
  - Vulvovaginal dryness [Unknown]

NARRATIVE: CASE EVENT DATE: 2017
